FAERS Safety Report 6102105-6 (Version None)
Quarter: 2009Q1

REPORT INFORMATION
  Report Type: 
  Country: None (occurrence: None)
  Receive Date: 20090304
  Receipt Date: 20090220
  Transmission Date: 20090719
  Serious: Yes (Hospitalization, Other)
  Sender: FDA-Public Use
  Company Number: JP-PFIZER INC-2008095866

PATIENT

DRUGS (4)
  1. FARMORUBICIN [Suspect]
     Indication: HEPATIC NEOPLASM MALIGNANT
     Dosage: 55 MG
     Dates: start: 20081106, end: 20081106
  2. ALL OTHER THERAPEUTIC PRODUCTS [Suspect]
     Indication: HEPATIC NEOPLASM MALIGNANT
     Route: 013
     Dates: start: 20081106, end: 20081106
  3. FERROUS FUMARATE [Concomitant]
     Dosage: UNK
     Route: 048
     Dates: end: 20081109
  4. URSO 250 [Concomitant]
     Indication: HEPATIC NEOPLASM MALIGNANT
     Dosage: UNK
     Route: 048
     Dates: end: 20081109

REACTIONS (7)
  - BLOOD BILIRUBIN INCREASED [None]
  - CELLULITIS [None]
  - LYMPHOCYTE COUNT DECREASED [None]
  - NEUTROPENIA [None]
  - PLATELET COUNT DECREASED [None]
  - SEPTIC SHOCK [None]
  - WHITE BLOOD CELL COUNT DECREASED [None]
